FAERS Safety Report 25229171 (Version 2)
Quarter: 2025Q2

REPORT INFORMATION
  Report Type: Spontaneous
  Country: US (occurrence: US)
  Receive Date: 20250423
  Receipt Date: 20250529
  Transmission Date: 20250717
  Serious: No
  Sender: BAUSCH AND LOMB
  Company Number: US-BAUSCHBL-2025BNL006660

PATIENT
  Age: 85 Year
  Sex: Female

DRUGS (6)
  1. LUMIFY [Suspect]
     Active Substance: BRIMONIDINE TARTRATE
     Indication: Ocular hyperaemia
     Dosage: 1 DROP INTO EACH EYE ONCE DAILY
     Route: 047
     Dates: start: 2024
  2. LUMIFY [Suspect]
     Active Substance: BRIMONIDINE TARTRATE
     Indication: Erythema of eyelid
  3. COSMETICS [Suspect]
     Active Substance: COSMETICS
     Indication: Periorbital swelling
     Route: 065
  4. COSMETICS [Suspect]
     Active Substance: COSMETICS
     Indication: Periorbital cellulitis
  5. UNSPECIFIED INGREDIENT [Suspect]
     Active Substance: UNSPECIFIED INGREDIENT
     Indication: Dry eye
     Route: 065
     Dates: start: 202504
  6. UNSPECIFIED INGREDIENT [Suspect]
     Active Substance: UNSPECIFIED INGREDIENT
     Indication: Ocular hyperaemia

REACTIONS (9)
  - Condition aggravated [Not Recovered/Not Resolved]
  - Oropharyngeal discomfort [Unknown]
  - Therapeutic product effect incomplete [Unknown]
  - Drug ineffective [Unknown]
  - Exposure via skin contact [Unknown]
  - Accidental exposure to product [Recovered/Resolved]
  - Product container issue [Unknown]
  - Product use complaint [Unknown]
  - Product complaint [Unknown]

NARRATIVE: CASE EVENT DATE: 20250101
